FAERS Safety Report 5389666-X (Version None)
Quarter: 2007Q3

REPORT INFORMATION
  Report Type: 
  Country: None (occurrence: None)
  Receive Date: 20070717
  Receipt Date: 20070713
  Transmission Date: 20080115
  Serious: Yes (Hospitalization)
  Sender: FDA-Public Use
  Company Number: DE-SHR-DE-2007-020585

PATIENT
  Age: 60 Year
  Sex: Male
  Weight: 85 kg

DRUGS (2)
  1. CAMPATH [Suspect]
     Dosage: 3/10/30 MG
     Route: 042
     Dates: start: 20030602, end: 20030613
  2. CAMPATH [Suspect]
     Dosage: 30 MG, CYCLES
     Route: 058
     Dates: start: 20030616, end: 20030625

REACTIONS (1)
  - INFECTION [None]
